FAERS Safety Report 15753520 (Version 1)
Quarter: 2018Q4

REPORT INFORMATION
  Report Type: Spontaneous
  Country: DE (occurrence: DE)
  Receive Date: 20181222
  Receipt Date: 20181222
  Transmission Date: 20190205
  Serious: Yes (Hospitalization)
  Sender: FDA-Public Use
  Company Number: DE-TEVA-2018-DE-988742

PATIENT
  Age: 73 Year
  Sex: Female
  Weight: 66 kg

DRUGS (20)
  1. CYCLOPHOSPHAMIDE. [Suspect]
     Active Substance: CYCLOPHOSPHAMIDE
     Dosage: LAST DOSE PRIOR TO SAE ON 31/JAN/2013 AND  14/MAR/2013
     Route: 042
     Dates: start: 20130110
  2. TAXOL [Suspect]
     Active Substance: PACLITAXEL
     Indication: BREAST CANCER
     Dosage: LAST DOSE PRIOR TO THE EVENT: 04/JUN/2013
     Route: 042
     Dates: start: 20130404, end: 20130604
  3. PRAVASTATIN. [Concomitant]
     Active Substance: PRAVASTATIN
     Route: 065
     Dates: start: 20120924
  4. TAVEGIL [Concomitant]
     Active Substance: CLEMASTINE FUMARATE
     Route: 065
     Dates: start: 20130404
  5. PERTUZUMAB. [Suspect]
     Active Substance: PERTUZUMAB
     Indication: BREAST CANCER
     Dosage: LAST DOSE PRIOR TO THE SAE: 21/MAY/2013
     Route: 042
     Dates: start: 20130404, end: 20130521
  6. UROMITEXAN [Concomitant]
     Active Substance: MESNA
     Route: 065
     Dates: start: 20130110
  7. TORASEMID [Concomitant]
     Active Substance: TORSEMIDE
     Route: 065
     Dates: start: 20120924
  8. DEXAMETHASONE. [Concomitant]
     Active Substance: DEXAMETHASONE
     Dosage: 0.2 UNITS NOT REPORTED
     Route: 065
     Dates: start: 20130110
  9. VOCADO [Concomitant]
     Active Substance: AMLODIPINE BESYLATE\OLMESARTAN MEDOXOMIL
     Dosage: TOTAL DAILY DOSE: 40/5/12.5MG
     Route: 065
     Dates: start: 20120827
  10. EMEND [Concomitant]
     Active Substance: APREPITANT
     Route: 065
     Dates: start: 20130110, end: 20130314
  11. CYCLOPHOSPHAMIDE. [Suspect]
     Active Substance: CYCLOPHOSPHAMIDE
     Indication: HER-2 POSITIVE BREAST CANCER
     Dosage: 130 MILLIGRAM DAILY; LAST DOSE PRIOR TO THE EVENT: 17/MAR/2013
     Route: 042
     Dates: start: 20130110
  12. CYCLOPHOSPHAMIDE. [Suspect]
     Active Substance: CYCLOPHOSPHAMIDE
     Route: 042
  13. VERAPAMIL [Concomitant]
     Active Substance: VERAPAMIL HYDROCHLORIDE
     Route: 065
     Dates: start: 20080114
  14. HERCEPTIN [Suspect]
     Active Substance: TRASTUZUMAB
     Route: 065
     Dates: start: 20130704
  15. GRANISETRON [Concomitant]
     Active Substance: GRANISETRON
     Dosage: 0.2 UNITS NOT REPORTED
     Route: 065
     Dates: start: 20130110
  16. EPIRUBICIN [Suspect]
     Active Substance: EPIRUBICIN
     Indication: HER-2 POSITIVE BREAST CANCER
     Dosage: 170 MILLIGRAM DAILY; LAST DOSE PRIOR TO SAE:17/MAR/2013
     Route: 042
     Dates: start: 20130110
  17. EPIRUBICIN [Suspect]
     Active Substance: EPIRUBICIN
     Dosage: 170 MG/M2 DAILY; DATE OF LAST DOSE PRIOR TO SAE: 10/JAN/2013 AND 14/MAR/2013
     Route: 042
     Dates: start: 20130110
  18. PERTUZUMAB. [Suspect]
     Active Substance: PERTUZUMAB
     Route: 065
     Dates: start: 20130704
  19. HERCEPTIN [Suspect]
     Active Substance: TRASTUZUMAB
     Indication: BREAST CANCER
     Dosage: LAST DOSE PIOR TO THE SAE: 21/MAY/2013
     Route: 042
     Dates: start: 20130404, end: 20130521
  20. BERLINSULIN H [Concomitant]
     Route: 065
     Dates: start: 20060215

REACTIONS (7)
  - Fatigue [Recovered/Resolved]
  - Neutropenia [Recovered/Resolved]
  - Fatigue [Recovered/Resolved]
  - Neutropenia [Recovered/Resolved]
  - Fatigue [Not Recovered/Not Resolved]
  - Fatigue [Recovered/Resolved]
  - Fatigue [Not Recovered/Not Resolved]

NARRATIVE: CASE EVENT DATE: 20130123
